FAERS Safety Report 14538039 (Version 1)
Quarter: 2018Q1

REPORT INFORMATION
  Report Type: Report from Study
  Country: US (occurrence: US)
  Receive Date: 20180216
  Receipt Date: 20180216
  Transmission Date: 20180509
  Serious: Yes (Hospitalization, Other)
  Sender: FDA-Public Use
  Company Number: US-ROCHE-2068850

PATIENT
  Age: 57 Year
  Sex: Female
  Weight: 80 kg

DRUGS (14)
  1. LORAZEPAM. [Concomitant]
     Active Substance: LORAZEPAM
  2. MYFORTIC [Concomitant]
     Active Substance: MYCOPHENOLATE SODIUM
  3. METOLAZONE. [Concomitant]
     Active Substance: METOLAZONE
  4. CANDESARTAN. [Concomitant]
     Active Substance: CANDESARTAN
  5. LIPITOR [Concomitant]
     Active Substance: ATORVASTATIN CALCIUM
  6. BUPROPION. [Concomitant]
     Active Substance: BUPROPION
  7. CYCLOSPORINE. [Concomitant]
     Active Substance: CYCLOSPORINE
  8. POTASSIUM CHLORIDE. [Concomitant]
     Active Substance: POTASSIUM CHLORIDE
  9. RITUXIMAB. [Suspect]
     Active Substance: RITUXIMAB
     Indication: FOCAL SEGMENTAL GLOMERULOSCLEROSIS
     Dosage: 500 MG/50 ML X2 VIALS, DATE OF LAST DOSE PRIOR TO SAE: 05/SEP/2017
     Route: 042
     Dates: start: 20170817
  10. PANTOPRAZOLE [Concomitant]
     Active Substance: PANTOPRAZOLE
  11. SEPTRA [Concomitant]
     Active Substance: SULFAMETHOXAZOLE\TRIMETHOPRIM
  12. LASIX [Concomitant]
     Active Substance: FUROSEMIDE
  13. SERTRALINE [Concomitant]
     Active Substance: SERTRALINE HYDROCHLORIDE
  14. PREDNISONE. [Concomitant]
     Active Substance: PREDNISONE

REACTIONS (4)
  - Vomiting [Unknown]
  - Infection [Recovering/Resolving]
  - Upper respiratory tract infection [Unknown]
  - Influenza [Unknown]

NARRATIVE: CASE EVENT DATE: 20171018
